FAERS Safety Report 12776011 (Version 1)
Quarter: 2016Q3

REPORT INFORMATION
  Report Type: Other
  Country: FR (occurrence: FR)
  Receive Date: 20160923
  Receipt Date: 20160923
  Transmission Date: 20161109
  Serious: Yes (Hospitalization, Other)
  Sender: FDA-Public Use
  Company Number: FR-ASTELLAS-2016US036644

PATIENT
  Age: 16 Year
  Sex: Female

DRUGS (4)
  1. PROGRAF [Suspect]
     Active Substance: TACROLIMUS\TACROLIMUS ANHYDROUS
     Indication: ORGAN TRANSPLANT
     Route: 048
     Dates: start: 201306
  2. PROGRAF [Suspect]
     Active Substance: TACROLIMUS\TACROLIMUS ANHYDROUS
     Route: 048
  3. CERTICAN [Suspect]
     Active Substance: EVEROLIMUS
     Route: 048
  4. CERTICAN [Suspect]
     Active Substance: EVEROLIMUS
     Indication: ORGAN TRANSPLANT
     Route: 048
     Dates: start: 201306

REACTIONS (20)
  - Acute kidney injury [Not Recovered/Not Resolved]
  - Ear infection [Unknown]
  - Overdose [Not Recovered/Not Resolved]
  - Clostridium difficile infection [Unknown]
  - Sputum abnormal [Unknown]
  - Flank pain [Unknown]
  - Pain in extremity [Unknown]
  - Back pain [Unknown]
  - Off label use [Unknown]
  - Malnutrition [Unknown]
  - Gastric ulcer [Unknown]
  - Epstein-Barr virus infection [Unknown]
  - Rash macular [Recovered/Resolved]
  - Colitis [Unknown]
  - Pruritus [Unknown]
  - Cholestasis [Unknown]
  - Epstein-Barr virus associated lymphoproliferative disorder [Recovered/Resolved]
  - Pancreatitis acute [Unknown]
  - Renal tubular necrosis [Unknown]
  - Conjunctivitis [Unknown]

NARRATIVE: CASE EVENT DATE: 2013
